FAERS Safety Report 9590912 (Version 1)
Quarter: 2013Q4

REPORT INFORMATION
  Report Type: Spontaneous
  Country: US (occurrence: US)
  Receive Date: 20131003
  Receipt Date: 20131003
  Transmission Date: 20140711
  Serious: No
  Sender: FDA-Public Use
  Company Number: US-AMGEN-USASP2012080093

PATIENT
  Sex: Female

DRUGS (13)
  1. ENBREL [Suspect]
     Indication: PRODUCT USED FOR UNKNOWN INDICATION
     Dosage: 50 MG/ML, QWK
     Route: 058
  2. SINGULAR [Concomitant]
     Dosage: 10 MG, UNK
  3. LEVOTHYROXINE [Concomitant]
     Dosage: 175 MUG, UNK
  4. GABAPENTIN [Concomitant]
     Dosage: 100 MG, UNK
  5. METFORMIN [Concomitant]
     Dosage: 500 MG, UNK
  6. LISINOPRIL [Concomitant]
     Dosage: 40 MG, UNK
  7. METHOTREXATE [Concomitant]
     Dosage: 2.5 MG, UNK
  8. MULTIVITAMIN                       /00097801/ [Concomitant]
     Dosage: UNK
  9. FISH OIL [Concomitant]
     Dosage: UNK
  10. VITAMIN D                          /00318501/ [Concomitant]
     Dosage: 5000 UNIT, 3 CAPSULE
  11. VITAMIN C                          /00008001/ [Concomitant]
     Dosage: 100 MG, UNK
  12. VITAMIN B [Concomitant]
     Dosage: UNK
  13. XYZAL [Concomitant]
     Dosage: 5 MG, UNK

REACTIONS (1)
  - Sinusitis [Unknown]
